FAERS Safety Report 12389310 (Version 1)
Quarter: 2016Q2

REPORT INFORMATION
  Report Type: Spontaneous
  Country: US (occurrence: None)
  Receive Date: 20160519
  Receipt Date: 20160519
  Transmission Date: 20160815
  Serious: Yes (Death, Hospitalization)
  Sender: FDA-Public Use
  Company Number: None

PATIENT
  Age: 59 Year
  Sex: Female
  Weight: 57.6 kg

DRUGS (1)
  1. ALFA 2 INTERFERON 2B [Suspect]
     Active Substance: INTERFERON ALFA-2B
     Dosage: 270 MU
     Dates: end: 20140221

REACTIONS (4)
  - Cerebral haemorrhage [None]
  - Urinary tract infection [None]
  - Metastatic malignant melanoma [None]
  - Loss of consciousness [None]

NARRATIVE: CASE EVENT DATE: 20141127
